FAERS Safety Report 25503710 (Version 5)
Quarter: 2025Q3

REPORT INFORMATION
  Report Type: Spontaneous
  Country: US (occurrence: US)
  Receive Date: 20250702
  Receipt Date: 20250828
  Transmission Date: 20251021
  Serious: No
  Sender: PFIZER
  Company Number: US-PFIZER INC-202500131105

PATIENT
  Age: 66 Year
  Sex: Male

DRUGS (1)
  1. GENOTROPIN [Suspect]
     Active Substance: SOMATROPIN
     Dosage: 0.4 MG, 7 DAYS/WEEK
     Dates: start: 202505

REACTIONS (4)
  - Drug dose omission by device [Unknown]
  - Wrong technique in device usage process [Recovered/Resolved]
  - Device leakage [Unknown]
  - Device delivery system issue [Unknown]
